FAERS Safety Report 8026129-7 (Version None)
Quarter: 2012Q1

REPORT INFORMATION
  Report Type: 
  Country: None (occurrence: None)
  Receive Date: 20120105
  Receipt Date: 20110830
  Transmission Date: 20120608
  Serious: No
  Sender: FDA-Public Use
  Company Number: US-ABBOTT-11P-163-0733728-00

PATIENT
  Sex: Female
  Weight: 99.88 kg

DRUGS (5)
  1. SYNTHROID [Suspect]
     Route: 048
     Dates: start: 19960101
  2. VITAMIN B COMPLEX CAP [Concomitant]
     Indication: VITAMIN SUPPLEMENTATION
     Route: 048
  3. MULTI-VITAMIN [Concomitant]
     Indication: VITAMIN SUPPLEMENTATION
     Route: 048
  4. SYNTHROID [Suspect]
     Indication: THYROID DISORDER
     Dosage: IN MORNING
     Dates: end: 19960101
  5. SYNTHROID [Suspect]
     Indication: HYPOTHYROIDISM

REACTIONS (9)
  - HEADACHE [None]
  - DRUG EFFECT DECREASED [None]
  - FEELING ABNORMAL [None]
  - SNEEZING [None]
  - SPEECH DISORDER [None]
  - APHASIA [None]
  - MEMORY IMPAIRMENT [None]
  - FATIGUE [None]
  - HYPERSENSITIVITY [None]
